FAERS Safety Report 9527075 (Version 2)
Quarter: 2013Q3

REPORT INFORMATION
  Report Type: Spontaneous
  Country: US (occurrence: US)
  Receive Date: 20130916
  Receipt Date: 20130916
  Transmission Date: 20140515
  Serious: No
  Sender: FDA-Public Use
  Company Number: US-TEVA-375333USA

PATIENT
  Sex: Female

DRUGS (4)
  1. LEUCOVORIN [Suspect]
     Indication: COLORECTAL CANCER METASTATIC
     Dosage: EVERY CYCLE/1 DAY
     Route: 042
  2. ZALTRAP [Suspect]
     Indication: COLORECTAL CANCER METASTATIC
     Dosage: EVERY CYCLE/1 DAY
     Route: 041
  3. 5 FU [Suspect]
     Indication: COLORECTAL CANCER METASTATIC
     Dosage: EVERY CYCLE
     Route: 042
  4. IRINOTECAN [Suspect]
     Dosage: EVERY CYCLE/1 DAY
     Route: 042

REACTIONS (2)
  - Hypertension [Unknown]
  - Rash [Unknown]
